FAERS Safety Report 9324885 (Version 3)
Quarter: 2013Q3

REPORT INFORMATION
  Report Type: Report from Study
  Country: NL (occurrence: NL)
  Receive Date: 20130603
  Receipt Date: 20130816
  Transmission Date: 20140515
  Serious: Yes (Hospitalization, Other)
  Sender: FDA-Public Use
  Company Number: PHHO2013NL007130

PATIENT
  Sex: 0

DRUGS (4)
  1. PROGRAF [Suspect]
     Indication: RENAL TRANSPLANT
     Dosage: 2 MG, BID
     Route: 048
     Dates: start: 20120217
  2. PREDNISONE [Suspect]
     Indication: RENAL TRANSPLANT
     Dosage: 5 MG, QD
     Dates: start: 20120217
  3. MYFORTIC [Suspect]
     Indication: RENAL TRANSPLANT
     Dosage: 540 MG, BID
     Route: 048
     Dates: start: 20120217, end: 20130527
  4. STEROIDS NOS [Concomitant]
     Dosage: 5 MG, QD
     Dates: start: 20120217

REACTIONS (2)
  - Pyrexia [Recovered/Resolved]
  - Bronchial carcinoma [Not Recovered/Not Resolved]
